FAERS Safety Report 8220919-3 (Version None)
Quarter: 2012Q1

REPORT INFORMATION
  Report Type: 
  Country: None (occurrence: None)
  Receive Date: 20120320
  Receipt Date: 20120309
  Transmission Date: 20120608
  Serious: Yes (Other)
  Sender: FDA-Public Use
  Company Number: US-MYLANLABS-2012S1005619

PATIENT
  Sex: Female

DRUGS (3)
  1. FENTANYL-100 [Interacting]
  2. SEROQUEL [Interacting]
  3. EMSAM [Suspect]

REACTIONS (2)
  - SEROTONIN SYNDROME [None]
  - DRUG INTERACTION [None]
